FAERS Safety Report 6984484-0 (Version None)
Quarter: 2010Q3

REPORT INFORMATION
  Report Type: 
  Country: None (occurrence: None)
  Receive Date: 20100915
  Receipt Date: 20100901
  Transmission Date: 20110219
  Serious: Yes (Other)
  Sender: FDA-Public Use
  Company Number: US-CELGENEUS-163-21880-09110618

PATIENT
  Sex: Male

DRUGS (6)
  1. REVLIMID [Suspect]
     Indication: MULTIPLE MYELOMA
     Route: 048
     Dates: start: 20090129, end: 20091022
  2. REVLIMID [Suspect]
     Route: 048
     Dates: start: 20091201, end: 20091210
  3. CLARITHROMYCIN [Concomitant]
     Indication: MULTIPLE MYELOMA
     Route: 065
  4. INTERFERON [Concomitant]
     Indication: MULTIPLE MYELOMA
     Route: 065
  5. VELCADE [Concomitant]
     Indication: MULTIPLE MYELOMA
     Route: 065
  6. DOXIL [Concomitant]
     Indication: MULTIPLE MYELOMA
     Route: 065

REACTIONS (4)
  - 5Q MINUS SYNDROME [None]
  - BLOOD COUNT ABNORMAL [None]
  - NEUTROPENIA [None]
  - THROMBOCYTOPENIA [None]
